FAERS Safety Report 9316405 (Version 2)
Quarter: 2013Q3

REPORT INFORMATION
  Report Type: Report from Study
  Country: CA (occurrence: CA)
  Receive Date: 20130530
  Receipt Date: 20130902
  Transmission Date: 20140515
  Serious: Yes (Other)
  Sender: FDA-Public Use
  Company Number: CA-JNJFOC-20130516772

PATIENT
  Age: 54 Year
  Sex: Male

DRUGS (1)
  1. SIMPONI [Suspect]
     Indication: ANKYLOSING SPONDYLITIS
     Dosage: APPROXIMATE TOTAL NUMBER OF INJECTIONS PATIENT RECEIVED WAS12
     Route: 058
     Dates: start: 20120208

REACTIONS (1)
  - Pneumonia [Recovered/Resolved]
